FAERS Safety Report 20733198 (Version 7)
Quarter: 2025Q2

REPORT INFORMATION
  Report Type: Spontaneous
  Country: BE (occurrence: BE)
  Receive Date: 20220421
  Receipt Date: 20250625
  Transmission Date: 20250717
  Serious: Yes (Life-Threatening, Hospitalization, Other)
  Sender: BRISTOL-MYERS SQUIBB COMPANY
  Company Number: BE-Waverley Pharma-000562

PATIENT
  Age: 69 Year
  Sex: Female

DRUGS (15)
  1. LENALIDOMIDE [Suspect]
     Active Substance: LENALIDOMIDE
     Indication: Plasma cell myeloma
     Dosage: DAYS 1-21?28-DAY CYCLE REGIMEN
  2. LENALIDOMIDE [Suspect]
     Active Substance: LENALIDOMIDE
     Indication: Thrombosis prophylaxis
     Route: 048
  3. LENALIDOMIDE [Suspect]
     Active Substance: LENALIDOMIDE
     Route: 048
  4. LENADEX [Suspect]
     Active Substance: DEXAMETHASONE ACETATE
     Indication: Plasma cell myeloma
  5. LENADEX [Suspect]
     Active Substance: DEXAMETHASONE ACETATE
  6. LENADEX [Suspect]
     Active Substance: DEXAMETHASONE ACETATE
  7. BORTEZOMIB [Suspect]
     Active Substance: BORTEZOMIB
     Indication: Plasma cell myeloma
  8. BORTEZOMIB [Suspect]
     Active Substance: BORTEZOMIB
     Indication: Myocarditis
  9. BORTEZOMIB [Suspect]
     Active Substance: BORTEZOMIB
  10. BORTEZOMIB [Suspect]
     Active Substance: BORTEZOMIB
     Dosage: DAYS 1, 4, 8, 11?28-DAY CYCLE REGIMEN
  11. BORTEZOMIB [Suspect]
     Active Substance: BORTEZOMIB
  12. BORTEZOMIB [Suspect]
     Active Substance: BORTEZOMIB
  13. ENOXAPARIN [Suspect]
     Active Substance: ENOXAPARIN
     Indication: Thrombosis prophylaxis
     Dosage: 40 MILLIGRAM, QD
     Route: 058
  14. ENOXAPARIN [Suspect]
     Active Substance: ENOXAPARIN
     Route: 058
  15. ENOXAPARIN [Suspect]
     Active Substance: ENOXAPARIN
     Route: 058

REACTIONS (11)
  - Toxicity to various agents [Unknown]
  - Hypersensitivity myocarditis [Recovered/Resolved]
  - Left ventricular hypertrophy [Recovered/Resolved]
  - Ventricular tachycardia [Recovered/Resolved]
  - Hepatic enzyme increased [Recovered/Resolved]
  - Abdominal pain [Recovered/Resolved]
  - Diarrhoea [Recovered/Resolved]
  - Nausea [Recovered/Resolved]
  - Vomiting [Recovered/Resolved]
  - Rash erythematous [Recovered/Resolved]
  - Myocarditis [Recovered/Resolved]
